FAERS Safety Report 18366584 (Version 1)
Quarter: 2020Q4

REPORT INFORMATION
  Report Type: Spontaneous
  Country: CA (occurrence: CA)
  Receive Date: 20201009
  Receipt Date: 20201009
  Transmission Date: 20210114
  Serious: Yes (Other)
  Sender: FDA-Public Use
  Company Number: CA-PFIZER INC-2020385368

PATIENT
  Age: 11 Year
  Sex: Female
  Weight: 38 kg

DRUGS (5)
  1. DDAVP [Concomitant]
     Active Substance: DESMOPRESSIN ACETATE
     Dosage: 30 UG, 1X/DAY
     Route: 060
  2. SYNTHROID [Concomitant]
     Active Substance: LEVOTHYROXINE SODIUM
     Dosage: 75 MG, 1X/DAY
     Route: 048
  3. CORTEF [Concomitant]
     Active Substance: HYDROCORTISONE
     Dosage: 5 MG, 1X/DAY
     Route: 065
  4. SOMATROPIN. [Suspect]
     Active Substance: SOMATROPIN
     Indication: GROWTH HORMONE DEFICIENCY
     Dosage: 0.6 MG, 1X/DAY
     Route: 058
  5. DDAVP [Concomitant]
     Active Substance: DESMOPRESSIN ACETATE
     Dosage: 60 UG, 1X/DAY
     Route: 060

REACTIONS (1)
  - Neoplasm recurrence [Unknown]
